FAERS Safety Report 16268625 (Version 2)
Quarter: 2019Q2

REPORT INFORMATION
  Report Type: Report from Study
  Country: None (occurrence: US)
  Receive Date: 20190503
  Receipt Date: 20190505
  Transmission Date: 20190711
  Serious: Yes (Other)
  Sender: FDA-Public Use
  Company Number: US-ABBVIE-19K-163-2747098-00

PATIENT
  Age: 53 Year
  Sex: Female

DRUGS (1)
  1. HUMIRA [Suspect]
     Active Substance: ADALIMUMAB
     Indication: RHEUMATOID ARTHRITIS
     Dosage: CITRATE FREE
     Route: 058
     Dates: end: 20190415

REACTIONS (13)
  - Chills [Recovering/Resolving]
  - Blood thyroid stimulating hormone abnormal [Unknown]
  - Back pain [Unknown]
  - Constipation [Unknown]
  - Hypoaesthesia [Unknown]
  - Syncope [Unknown]
  - Abdominal pain lower [Unknown]
  - Nasopharyngitis [Recovered/Resolved with Sequelae]
  - Diarrhoea [Recovered/Resolved with Sequelae]
  - Oral fungal infection [Unknown]
  - Loss of consciousness [Unknown]
  - Fatigue [Recovered/Resolved with Sequelae]
  - Hypotension [Unknown]

NARRATIVE: CASE EVENT DATE: 201904
